FAERS Safety Report 19565339 (Version 1)
Quarter: 2021Q3

REPORT INFORMATION
  Report Type: Spontaneous
  Country: US (occurrence: US)
  Receive Date: 20210716
  Receipt Date: 20210716
  Transmission Date: 20211014
  Serious: Yes (Disabling, Other)
  Sender: FDA-Public Use
  Company Number: US-SA-2021SA226550

PATIENT
  Age: 56 Year
  Sex: Female

DRUGS (1)
  1. LANTUS SOLOSTAR [Suspect]
     Active Substance: INSULIN GLARGINE
     Indication: TYPE 1 DIABETES MELLITUS
     Dosage: 40 IU, BID
     Route: 065
     Dates: start: 2018

REACTIONS (5)
  - Inappropriate schedule of product administration [Unknown]
  - Disability [Unknown]
  - Respiratory disorder [Unknown]
  - Product storage error [Unknown]
  - Anxiety [Unknown]

NARRATIVE: CASE EVENT DATE: 2018
